FAERS Safety Report 6856426-X (Version None)
Quarter: 2010Q3

REPORT INFORMATION
  Report Type: 
  Country: None (occurrence: None)
  Receive Date: 20100719
  Receipt Date: 20100706
  Transmission Date: 20110219
  Serious: Yes (Other)
  Sender: FDA-Public Use
  Company Number: PHHY2010US44259

PATIENT
  Age: 91 Year
  Sex: Female

DRUGS (3)
  1. TEKTURNA [Suspect]
     Dosage: 150 MG, QD
     Route: 048
  2. TEKTURNA [Suspect]
     Dosage: 300 MG, QD
     Route: 048
  3. TEKTURNA [Suspect]
     Dosage: 150 MG, QD
     Route: 048

REACTIONS (1)
  - BLOOD SODIUM DECREASED [None]
